FAERS Safety Report 16864491 (Version 6)
Quarter: 2022Q3

REPORT INFORMATION
  Report Type: Spontaneous
  Country: US (occurrence: US)
  Receive Date: 20190928
  Receipt Date: 20220705
  Transmission Date: 20221027
  Serious: No
  Sender: FDA-Public Use
  Company Number: PHEH2019US039668

PATIENT
  Sex: Male

DRUGS (3)
  1. TIMOLOL GFS [Suspect]
     Active Substance: TIMOLOL MALEATE
     Indication: Product used for unknown indication
     Route: 065
  2. TIMOLOL GFS [Suspect]
     Active Substance: TIMOLOL MALEATE
     Dosage: UNK
     Route: 065
  3. TIMOLOL GFS [Suspect]
     Active Substance: TIMOLOL MALEATE
     Dosage: UNK UNK, QD
     Route: 065

REACTIONS (5)
  - Product administration error [Unknown]
  - Product quality issue [Unknown]
  - Product delivery mechanism issue [Unknown]
  - Incorrect dose administered [Unknown]
  - Accidental exposure to product [Unknown]
